FAERS Safety Report 6295878-3 (Version None)
Quarter: 2009Q3

REPORT INFORMATION
  Report Type: 
  Country: None (occurrence: None)
  Receive Date: 20090804
  Receipt Date: 20090720
  Transmission Date: 20100115
  Serious: Yes (Life-Threatening, Other)
  Sender: FDA-Public Use
  Company Number: GB-CELGENEUS-167-20484-09071625

PATIENT
  Sex: Female

DRUGS (18)
  1. INNOHEP [Suspect]
     Route: 058
     Dates: start: 20040209, end: 20040220
  2. INNOHEP [Suspect]
     Route: 058
     Dates: start: 20040220, end: 20040224
  3. INNOHEP [Suspect]
     Indication: STILLBIRTH
     Route: 058
     Dates: start: 20040224, end: 20040224
  4. INNOHEP [Suspect]
     Route: 058
     Dates: start: 20040624, end: 20040715
  5. INNOHEP [Suspect]
     Route: 058
     Dates: start: 20040715, end: 20040815
  6. INNOHEP [Suspect]
     Route: 058
     Dates: start: 20040815, end: 20040915
  7. INNOHEP [Suspect]
     Route: 058
     Dates: start: 20040915
  8. DIAMORPHINE [Concomitant]
     Indication: SPINAL ANAESTHESIA
     Route: 065
     Dates: start: 20040916, end: 20040916
  9. ASPIRIN [Concomitant]
     Indication: PROPHYLAXIS OF ABORTION
     Route: 065
  10. RANITIDINE [Concomitant]
     Route: 065
     Dates: start: 20040719
  11. LACTULOSE [Concomitant]
     Indication: CONSTIPATION
     Route: 065
     Dates: start: 20040704, end: 20040727
  12. BETAMETHASONE [Concomitant]
     Route: 065
     Dates: start: 20040913, end: 20040914
  13. PROSTAGLANDINS [Concomitant]
     Indication: LABOUR INDUCTION
     Route: 065
     Dates: start: 20040916, end: 20040916
  14. METOCLOPRAMIDE [Concomitant]
     Indication: NAUSEA
     Route: 065
     Dates: start: 20040916, end: 20040916
  15. AUGMENTIN [Concomitant]
     Indication: INFECTION PROPHYLAXIS
     Route: 065
     Dates: start: 20040916, end: 20040916
  16. OXYTOCIN [Concomitant]
     Indication: LABOUR STIMULATION
     Route: 065
     Dates: start: 20040916, end: 20040916
  17. SODIUM CITRATE [Concomitant]
     Indication: ANTACID THERAPY
     Route: 065
     Dates: start: 20040916, end: 20040916
  18. PHENYLEPHRINE [Concomitant]
     Indication: DRUG USE FOR UNKNOWN INDICATION
     Route: 065

REACTIONS (4)
  - CAESAREAN SECTION [None]
  - DRUG EXPOSURE DURING PREGNANCY [None]
  - FOETAL DISTRESS SYNDROME [None]
  - PREMATURE SEPARATION OF PLACENTA [None]
